FAERS Safety Report 21557845 (Version 1)
Quarter: 2022Q4

REPORT INFORMATION
  Report Type: Spontaneous
  Country: US (occurrence: None)
  Receive Date: 20221103
  Receipt Date: 20221103
  Transmission Date: 20230113
  Serious: No
  Sender: FDA-Public Use
  Company Number: None

PATIENT
  Age: 67 Year
  Sex: Female
  Weight: 93.44 kg

DRUGS (15)
  1. IBRANCE [Suspect]
     Active Substance: PALBOCICLIB
     Indication: Breast cancer female
     Dosage: OTHER FREQUENCY : 21D ON 7D OFF;?
     Route: 048
     Dates: start: 202102
  2. ATENOLOL [Concomitant]
     Active Substance: ATENOLOL
  3. ATORVASTATIN [Concomitant]
     Active Substance: ATORVASTATIN
  4. CONSTULOSE [Concomitant]
     Active Substance: LACTULOSE
  5. FULVESTRANT [Concomitant]
     Active Substance: FULVESTRANT
  6. FUROSEMIDE [Concomitant]
     Active Substance: FUROSEMIDE
  7. HUMALOG KWIKPEN [Concomitant]
     Active Substance: INSULIN LISPRO
  8. LETROZOLE [Concomitant]
     Active Substance: LETROZOLE
  9. LEVEMIR [Concomitant]
     Active Substance: INSULIN DETEMIR
  10. LOSARTAN [Concomitant]
     Active Substance: LOSARTAN
  11. MORPHINE [Concomitant]
     Active Substance: MORPHINE
  12. NAPROXEN [Concomitant]
     Active Substance: NAPROXEN
  13. POTASSIUM CHLORIDE [Concomitant]
     Active Substance: POTASSIUM CHLORIDE
  14. VITAMIN D [Concomitant]
     Active Substance: VITAMIN D NOS
  15. XARELTO [Concomitant]
     Active Substance: RIVAROXABAN

REACTIONS (1)
  - Disease progression [None]
